FAERS Safety Report 19595858 (Version 1)
Quarter: 2021Q3

REPORT INFORMATION
  Report Type: Spontaneous
  Country: CA (occurrence: CA)
  Receive Date: 20210722
  Receipt Date: 20210722
  Transmission Date: 20211014
  Serious: Yes (Death, Other)
  Sender: FDA-Public Use
  Company Number: CA-HLS-202107966

PATIENT
  Sex: Female

DRUGS (1)
  1. CLOZAPINE. [Suspect]
     Active Substance: CLOZAPINE
     Indication: SCHIZOPHRENIA
     Dosage: 250.0 MILLIGRAM
     Route: 065

REACTIONS (4)
  - Cardiac arrest [Fatal]
  - Pneumonia [Fatal]
  - Acute myocardial infarction [Fatal]
  - Cardiac failure congestive [Fatal]
